FAERS Safety Report 7490789-X (Version None)
Quarter: 2011Q2

REPORT INFORMATION
  Report Type: 
  Country: None (occurrence: None)
  Receive Date: 20110519
  Receipt Date: 20110502
  Transmission Date: 20111010
  Serious: Yes (Other)
  Sender: FDA-Public Use
  Company Number: US-BAYER-2011-007458

PATIENT
  Sex: Male
  Weight: 102.95 kg

DRUGS (30)
  1. TRASYLOL [Suspect]
     Dosage: 200ML LOADING DOSE
     Route: 042
     Dates: start: 20051020, end: 20051020
  2. NORVASC [Concomitant]
  3. HEPARIN [Concomitant]
     Dosage: 10000UNITS
     Route: 042
     Dates: start: 20051020, end: 20051020
  4. ESMOLOL [Concomitant]
     Dosage: UNK
     Route: 042
     Dates: start: 20010225
  5. PLATELETS [Concomitant]
     Dosage: UNK
     Route: 042
     Dates: start: 20010225
  6. CRYOPRECIPITATES [Concomitant]
     Dosage: UNK
     Dates: start: 20051020
  7. ACCUPRIL [Concomitant]
     Dosage: 2PILLS DAILY
  8. CEFEPIME [Concomitant]
     Dosage: 1 GM
     Route: 042
     Dates: start: 20010225, end: 20010225
  9. RED BLOOD CELLS [Concomitant]
     Dosage: 3 UNITS
     Route: 042
     Dates: start: 20010225
  10. PLATELETS [Concomitant]
     Dosage: UNK
     Dates: start: 20051020
  11. TRASYLOL [Suspect]
     Indication: AORTIC VALVE REPLACEMENT
     Dosage: 100CC LOADING DOSE
     Route: 042
     Dates: start: 20010225, end: 20010225
  12. PLASMALYTE [GLUCOSE,POTASSIUM CHLORIDE] [Concomitant]
     Dosage: 700CC
     Route: 042
     Dates: start: 20051020, end: 20051020
  13. SODIUM BICARBONATE [Concomitant]
     Dosage: 100MEQ
     Route: 042
     Dates: start: 20010225, end: 20010225
  14. EPINEPHRINE [Concomitant]
     Dosage: 2.0-4.0
     Route: 042
     Dates: start: 20010225
  15. CARDIZEM [Concomitant]
  16. PLASMALYTE [GLUCOSE,POTASSIUM CHLORIDE] [Concomitant]
     Dosage: 1000CC
     Route: 042
     Dates: start: 20010225, end: 20010225
  17. HEPARIN [Concomitant]
     Dosage: 10,000UNITS
     Route: 042
     Dates: start: 20010225, end: 20010225
  18. VANCOMYCIN [Concomitant]
     Dosage: UNK
     Route: 042
     Dates: start: 20010225
  19. TRASYLOL [Suspect]
     Indication: AORTIC SURGERY
     Dosage: 1 ML INITIAL (TEST) DOSE
     Route: 042
     Dates: start: 20010225, end: 20010225
  20. LASIX [Concomitant]
     Dosage: 40 MG
     Route: 042
     Dates: start: 20010225, end: 20010225
  21. EPINEPHRINE [Concomitant]
     Dosage: 4MCG/MIN
     Route: 042
     Dates: start: 20051020, end: 20051020
  22. PLASMA [Concomitant]
     Dosage: UNK
     Route: 042
     Dates: start: 20051020
  23. TRASYLOL [Suspect]
     Dosage: INITIAL DOSE
     Route: 042
     Dates: start: 20051020, end: 20051020
  24. HESPAN IN EXCEL PLASTIC CONTAINER [Concomitant]
     Dosage: 30GM-500CC
     Route: 042
     Dates: start: 20010225, end: 20010225
  25. HESPAN IN EXCEL PLASTIC CONTAINER [Concomitant]
     Dosage: 500CC
     Dates: start: 20051020, end: 20051020
  26. MILRINONE [Concomitant]
     Dosage: 0.5MCG/KG/MIN
     Route: 042
     Dates: start: 20051020, end: 20051020
  27. SODIUM BICARBONATE [Concomitant]
     Dosage: 50MEQ
     Route: 042
     Dates: start: 20051020, end: 20051020
  28. LASIX [Concomitant]
     Dosage: 40 MG
     Route: 042
     Dates: start: 20051020, end: 20051020
  29. NITROGLYCERIN [Concomitant]
     Dosage: 0.15-0.36 MCG/KG/MIN
     Route: 042
     Dates: start: 20010225
  30. RED BLOOD CELLS [Concomitant]
     Dosage: UNK
     Route: 042
     Dates: start: 20051020

REACTIONS (12)
  - DEPRESSION [None]
  - FEAR [None]
  - NERVOUSNESS [None]
  - RENAL INJURY [None]
  - MULTI-ORGAN FAILURE [None]
  - ANXIETY [None]
  - PAIN [None]
  - EMOTIONAL DISTRESS [None]
  - RENAL FAILURE [None]
  - UNEVALUABLE EVENT [None]
  - INJURY [None]
  - FEAR OF DEATH [None]
